FAERS Safety Report 9514897 (Version 1)
Quarter: 2013Q3

REPORT INFORMATION
  Report Type: Spontaneous
  Country: US (occurrence: None)
  Receive Date: 20130909
  Receipt Date: 20130909
  Transmission Date: 20140515
  Serious: Yes (Death)
  Sender: FDA-Public Use
  Company Number: 1713747-2013-99945

PATIENT
  Sex: Male

DRUGS (1)
  1. DELFLEX [Suspect]
     Indication: PERITONEAL DIALYSIS

REACTIONS (1)
  - Death [None]
